FAERS Safety Report 7486552-6 (Version None)
Quarter: 2011Q2

REPORT INFORMATION
  Report Type: 
  Country: None (occurrence: None)
  Receive Date: 20110517
  Receipt Date: 20100428
  Transmission Date: 20111010
  Serious: Yes (Other)
  Sender: FDA-Public Use
  Company Number: DE-GENENTECH-318594

PATIENT
  Age: 78 Year
  Sex: Female

DRUGS (1)
  1. LUCENTIS [Suspect]
     Indication: MACULAR DEGENERATION
     Route: 031

REACTIONS (5)
  - INJECTION SITE PAIN [None]
  - VISION BLURRED [None]
  - TOOTH LOSS [None]
  - PULMONARY EMBOLISM [None]
  - VISUAL IMPAIRMENT [None]
